FAERS Safety Report 9711011 (Version 2)
Quarter: 2013Q4

REPORT INFORMATION
  Report Type: Spontaneous
  Country: US (occurrence: US)
  Receive Date: 20131126
  Receipt Date: 20131126
  Transmission Date: 20140711
  Serious: Yes (Hospitalization, Other)
  Sender: FDA-Public Use
  Company Number: US-BRISTOL-MYERS SQUIBB COMPANY-18589424

PATIENT
  Age: 46 Year
  Sex: Female

DRUGS (6)
  1. BYDUREON 2MG VIAL + SYRINGE [Suspect]
     Indication: TYPE 2 DIABETES MELLITUS
     Route: 058
     Dates: start: 201212, end: 20130127
  2. CLINDAMYCIN [Suspect]
     Route: 048
     Dates: start: 20130125, end: 20130127
  3. GLIMEPIRIDE [Concomitant]
     Indication: TYPE 2 DIABETES MELLITUS
     Route: 048
  4. CORTICOSTEROID [Concomitant]
     Indication: URTICARIA
     Route: 042
     Dates: start: 20130127
  5. CORTICOSTEROID [Concomitant]
     Indication: URTICARIA
     Route: 048
  6. ATARAX [Concomitant]
     Indication: URTICARIA
     Route: 048

REACTIONS (2)
  - Angioedema [Recovered/Resolved]
  - Urticaria [Recovered/Resolved]
